FAERS Safety Report 5498538-1 (Version None)
Quarter: 2007Q4

REPORT INFORMATION
  Report Type: 
  Country: None (occurrence: None)
  Receive Date: 20071026
  Receipt Date: 20071018
  Transmission Date: 20080405
  Serious: Yes (Other)
  Sender: FDA-Public Use
  Company Number: PHBS2007GT17454

PATIENT
  Age: 56 Year
  Sex: Female

DRUGS (5)
  1. EXFORGE [Suspect]
     Indication: HYPERTENSION
     Dosage: 5 MG/160 MG/D
     Route: 048
     Dates: start: 20070920
  2. NPH ILETIN II [Concomitant]
     Dosage: 20 U EVERY 24 HOURS
     Route: 058
  3. COUMADIN [Concomitant]
     Dosage: 2.5 MG, MONDAY, WEDNESDAY, FRIDAY + SUNDAY
     Route: 048
  4. COUMADIN [Concomitant]
     Dosage: 5 MG, TUESDAY, THURSDAY, SATURDAY
     Route: 048
  5. COUMADIN [Concomitant]
     Dosage: 2.5 MG, QD

REACTIONS (5)
  - ACTIVATED PARTIAL THROMBOPLASTIN TIME PROLONGED [None]
  - BRONCHOSPASM [None]
  - INTERNATIONAL NORMALISED RATIO INCREASED [None]
  - PRODUCTIVE COUGH [None]
  - PROTHROMBIN TIME PROLONGED [None]
